FAERS Safety Report 7420175-X (Version None)
Quarter: 2011Q2

REPORT INFORMATION
  Report Type: 
  Country: None (occurrence: None)
  Receive Date: 20110418
  Receipt Date: 20110414
  Transmission Date: 20111010
  Serious: Yes (Hospitalization, Other)
  Sender: FDA-Public Use
  Company Number: FR-SANOFI-AVENTIS-2011SA011204

PATIENT
  Age: 63 Year
  Sex: Female

DRUGS (25)
  1. STILNOX [Suspect]
     Route: 048
     Dates: start: 19930101
  2. XANAX [Concomitant]
     Route: 048
     Dates: start: 20090703, end: 20100801
  3. ALPRAZOLAM [Concomitant]
     Route: 048
     Dates: start: 20060725
  4. ACETAMINOPHEN [Concomitant]
     Route: 048
     Dates: start: 20080109, end: 20080401
  5. OFLOCET [Concomitant]
     Route: 048
     Dates: start: 20090716, end: 20090720
  6. HYPERICUM PERFORATUM EXTRACT [Concomitant]
  7. EFFEXOR [Concomitant]
     Route: 065
     Dates: start: 20080109, end: 20101001
  8. XANAX [Concomitant]
     Indication: SUICIDAL IDEATION
     Route: 048
     Dates: start: 20090703, end: 20100801
  9. SEROPLEX [Concomitant]
     Dosage: 10 MG MORNING AND 5 MG EVENING FOR ONE MONTH TO REPRESCRIBE
     Route: 048
     Dates: start: 20060725
  10. SPASMAG [Concomitant]
     Route: 048
     Dates: start: 20090724
  11. ZYPREXA [Concomitant]
     Route: 048
     Dates: start: 20100623, end: 20100701
  12. IMOVANE [Concomitant]
     Route: 048
     Dates: start: 20090716
  13. RISPERDAL [Concomitant]
     Route: 055
     Dates: start: 20100707, end: 20100830
  14. PARACETAMOL [Concomitant]
     Route: 048
     Dates: start: 20090716
  15. STILNOX [Suspect]
     Route: 048
     Dates: start: 20060725, end: 20110206
  16. CURCUMA LONGA [Concomitant]
     Route: 048
     Dates: start: 20091021
  17. LYRICA [Concomitant]
     Route: 048
     Dates: start: 20100830, end: 20101019
  18. PAROXETINE [Concomitant]
     Route: 048
     Dates: start: 20060803
  19. AERIUS [Concomitant]
     Route: 065
     Dates: start: 20061002
  20. ATARAX [Concomitant]
     Indication: INSOMNIA
     Route: 048
     Dates: start: 20061002
  21. TEMAZEPAM [Concomitant]
     Route: 048
     Dates: start: 20080109
  22. SEROPLEX [Concomitant]
     Route: 048
  23. IBUPROFEN [Concomitant]
     Route: 048
     Dates: start: 20090106, end: 20090201
  24. SEGLOR [Concomitant]
     Route: 048
     Dates: start: 20100120, end: 20100401
  25. HERBAL PREPARATION [Concomitant]
     Route: 065

REACTIONS (19)
  - NAUSEA [None]
  - ACCIDENT AT HOME [None]
  - FALL [None]
  - TRANSIENT ISCHAEMIC ATTACK [None]
  - SPEECH DISORDER [None]
  - CONDITION AGGRAVATED [None]
  - NERVOUSNESS [None]
  - APHASIA [None]
  - INSOMNIA [None]
  - DECREASED APPETITE [None]
  - WITHDRAWAL SYNDROME [None]
  - DAYDREAMING [None]
  - SLEEP APNOEA SYNDROME [None]
  - MENTAL DISORDER [None]
  - TOXICITY TO VARIOUS AGENTS [None]
  - DISORIENTATION [None]
  - CONFUSIONAL STATE [None]
  - DYSGEUSIA [None]
  - MALAISE [None]
